FAERS Safety Report 19454749 (Version 2)
Quarter: 2021Q3

REPORT INFORMATION
  Report Type: Report from Study
  Country: HK (occurrence: HK)
  Receive Date: 20210623
  Receipt Date: 20210701
  Transmission Date: 20211014
  Serious: Yes (Other)
  Sender: FDA-Public Use
  Company Number: HK-JNJFOC-20210629927

PATIENT
  Sex: Female

DRUGS (2)
  1. PRISTIQ EXTENDED?RELEASE [Concomitant]
     Active Substance: DESVENLAFAXINE SUCCINATE
  2. ESKETAMINE [Suspect]
     Active Substance: ESKETAMINE
     Indication: DEPRESSION

REACTIONS (6)
  - Headache [Recovered/Resolved]
  - Depression [Unknown]
  - Hallucination, auditory [Unknown]
  - Euphoric mood [Unknown]
  - Dissociation [Recovered/Resolved]
  - Fear [Unknown]

NARRATIVE: CASE EVENT DATE: 20210612
